FAERS Safety Report 12559391 (Version 3)
Quarter: 2017Q2

REPORT INFORMATION
  Report Type: Spontaneous
  Country: GB (occurrence: GB)
  Receive Date: 20160715
  Receipt Date: 20170428
  Transmission Date: 20170830
  Serious: Yes (Other)
  Sender: FDA-Public Use
  Company Number: GB-AUROBINDO-AUR-APL-2016-08900

PATIENT
  Sex: Female

DRUGS (6)
  1. CYCLOPHOSPHAMIDE. [Concomitant]
     Active Substance: CYCLOPHOSPHAMIDE
     Indication: PRODUCT USED FOR UNKNOWN INDICATION
     Route: 065
  2. METOCLOPRAMIDE. [Concomitant]
     Active Substance: METOCLOPRAMIDE
     Indication: PRODUCT USED FOR UNKNOWN INDICATION
     Route: 065
  3. NEULASTA [Concomitant]
     Active Substance: PEGFILGRASTIM
     Indication: PRODUCT USED FOR UNKNOWN INDICATION
     Route: 065
  4. APREPITANT. [Concomitant]
     Active Substance: APREPITANT
     Indication: PRODUCT USED FOR UNKNOWN INDICATION
     Route: 065
  5. ONDANSETRON [Suspect]
     Active Substance: ONDANSETRON
     Route: 065
  6. EPIRUBICIN [Concomitant]
     Active Substance: EPIRUBICIN
     Indication: PRODUCT USED FOR UNKNOWN INDICATION
     Route: 065

REACTIONS (5)
  - Lower respiratory tract infection [Unknown]
  - Nausea [Unknown]
  - Fatigue [Unknown]
  - Headache [Unknown]
  - Alopecia [Unknown]
